FAERS Safety Report 12242029 (Version 2)
Quarter: 2017Q1

REPORT INFORMATION
  Report Type: Spontaneous
  Country: US (occurrence: US)
  Receive Date: 20160406
  Receipt Date: 20170227
  Transmission Date: 20170428
  Serious: Yes (Hospitalization, Other)
  Sender: FDA-Public Use
  Company Number: US-ELI_LILLY_AND_COMPANY-US201604000370

PATIENT
  Age: 60 Year
  Sex: Female

DRUGS (8)
  1. CYMBALTA [Suspect]
     Active Substance: DULOXETINE HYDROCHLORIDE
     Indication: DEPRESSION
     Dosage: UNK, UNKNOWN
     Route: 048
     Dates: start: 20110113, end: 20150426
  2. LORAZEPAM. [Concomitant]
     Active Substance: LORAZEPAM
     Dosage: 1 MG, TID
     Route: 065
  3. HYDROCODONE/ACETAMINOPHEN [Concomitant]
     Active Substance: ACETAMINOPHEN\HYDROCODONE
     Dosage: UNK, OTHER
     Route: 065
  4. FLECTOR                            /00372302/ [Concomitant]
     Active Substance: DICLOFENAC SODIUM
     Dosage: UNK, UNKNOWN
     Route: 065
  5. CYMBALTA [Suspect]
     Active Substance: DULOXETINE HYDROCHLORIDE
     Indication: PAIN
  6. OMEPRAZOLE. [Concomitant]
     Active Substance: OMEPRAZOLE
     Dosage: 20 MG, UNKNOWN
     Route: 065
  7. ADDERALL [Concomitant]
     Active Substance: AMPHETAMINE ASPARTATE\AMPHETAMINE SULFATE\DEXTROAMPHETAMINE SACCHARATE\DEXTROAMPHETAMINE SULFATE
     Dosage: UNK, UNKNOWN
     Route: 065
  8. ZOLPIDEM [Concomitant]
     Active Substance: ZOLPIDEM\ZOLPIDEM TARTRATE
     Dosage: 10 MG, QD
     Route: 065

REACTIONS (30)
  - Dysphoria [Unknown]
  - Sensory disturbance [Unknown]
  - Nausea [Unknown]
  - Irritability [Unknown]
  - Alanine aminotransferase increased [Unknown]
  - Hypomania [Unknown]
  - Vertigo [Unknown]
  - Tremor [Unknown]
  - Agitation [Unknown]
  - Paraesthesia [Unknown]
  - Dizziness [Unknown]
  - Anger [Unknown]
  - Aspartate aminotransferase increased [Unknown]
  - Coma [Unknown]
  - Suicidal ideation [Unknown]
  - Insomnia [Unknown]
  - Drug withdrawal syndrome [Unknown]
  - Ischaemia [Unknown]
  - Loss of consciousness [Unknown]
  - Altered state of consciousness [Unknown]
  - Fall [Unknown]
  - Affect lability [Unknown]
  - Fatigue [Unknown]
  - Lethargy [Unknown]
  - Sinus tachycardia [Unknown]
  - Suicide attempt [Unknown]
  - Hyperhidrosis [Unknown]
  - Anxiety [Unknown]
  - Tinnitus [Unknown]
  - Confusional state [Unknown]
